FAERS Safety Report 17484000 (Version 1)
Quarter: 2020Q1

REPORT INFORMATION
  Report Type: Spontaneous
  Country: US (occurrence: US)
  Receive Date: 20200219
  Receipt Date: 20200219
  Transmission Date: 20200409
  Serious: Yes (Other)
  Sender: FDA-Public Use
  Company Number: None

PATIENT
  Sex: Female

DRUGS (1)
  1. GLATIRAMER ACETATE (12X1ML) 40MG/ML MYLAN [Suspect]
     Active Substance: GLATIRAMER ACETATE
     Indication: MULTIPLE SCLEROSIS
     Route: 058
     Dates: start: 201910

REACTIONS (11)
  - Heart rate irregular [None]
  - Dysgeusia [None]
  - Back pain [None]
  - Dyspnoea [None]
  - Headache [None]
  - Feeling cold [None]
  - Pain [None]
  - Muscular weakness [None]
  - Erythema [None]
  - Pallor [None]
  - Chills [None]
